FAERS Safety Report 23870947 (Version 2)
Quarter: 2025Q1

REPORT INFORMATION
  Report Type: Spontaneous
  Country: US (occurrence: US)
  Receive Date: 20240518
  Receipt Date: 20250129
  Transmission Date: 20250408
  Serious: No
  Sender: SANOFI AVENTIS
  Company Number: US-SA-SAC20240513000123

PATIENT
  Age: 42 Year
  Sex: Female
  Weight: 91.6 kg

DRUGS (1)
  1. DUPIXENT [Suspect]
     Active Substance: DUPILUMAB
     Indication: Eosinophilic oesophagitis
     Dosage: 300 MG, QW
     Route: 058
     Dates: start: 202207

REACTIONS (1)
  - Ankle operation [Recovered/Resolved]

NARRATIVE: CASE EVENT DATE: 20231101
